FAERS Safety Report 5971686-5 (Version None)
Quarter: 2008Q4

REPORT INFORMATION
  Report Type: 
  Country: None (occurrence: None)
  Receive Date: 20081126
  Receipt Date: 20081126
  Transmission Date: 20090506
  Serious: Yes (Hospitalization)
  Sender: FDA-Public Use
  Company Number: None

PATIENT
  Sex: Female
  Weight: 43.6 kg

DRUGS (3)
  1. FLUOROURACIL [Suspect]
     Dosage: 4840 MG
  2. CISPLATIN [Suspect]
     Dosage: 109 MG
  3. ERBITUX [Suspect]
     Dosage: 365 MG

REACTIONS (9)
  - ASTHENIA [None]
  - BLOOD CULTURE POSITIVE [None]
  - BLOOD POTASSIUM DECREASED [None]
  - DIARRHOEA [None]
  - FATIGUE [None]
  - HYPOTENSION [None]
  - HYPOVOLAEMIA [None]
  - SINUS ARRHYTHMIA [None]
  - STAPHYLOCOCCAL INFECTION [None]
